FAERS Safety Report 4592000-6 (Version None)
Quarter: 2005Q1

REPORT INFORMATION
  Report Type: 
  Country: None (occurrence: None)
  Receive Date: 20050125
  Receipt Date: 20041103
  Transmission Date: 20050727
  Serious: No
  Sender: FDA-Public Use
  Company Number: USA040670552

PATIENT
  Age: 74 Year
  Sex: Female
  Weight: 44 kg

DRUGS (2)
  1. FORTEO [Suspect]
     Dates: start: 20040524
  2. CORTISONE [Concomitant]

REACTIONS (8)
  - ABDOMINAL DISTENSION [None]
  - ASTHENIA [None]
  - CARDIAC VALVE DISEASE [None]
  - DYSPNOEA [None]
  - HIRSUTISM [None]
  - INSOMNIA [None]
  - MEDICATION ERROR [None]
  - WEIGHT INCREASED [None]
